FAERS Safety Report 12399662 (Version 1)
Quarter: 2016Q2

REPORT INFORMATION
  Report Type: Spontaneous
  Country: IN (occurrence: IN)
  Receive Date: 20160524
  Receipt Date: 20160524
  Transmission Date: 20160815
  Serious: Yes (Hospitalization)
  Sender: FDA-Public Use
  Company Number: IN-B. BRAUN MEDICAL INC.-1052747

PATIENT
  Age: 50 Year
  Sex: Male
  Weight: 60 kg

DRUGS (21)
  1. SULBACTAM [Suspect]
     Active Substance: SULBACTAM
     Route: 040
  2. HYOSCINE BUTYLBROMIDE [Suspect]
     Active Substance: BUTYLSCOPOLAMINE
  3. ZINCOVIT - VITAMINS NOS [Suspect]
     Active Substance: VITAMINS
  4. METRONIDAZOLE. [Suspect]
     Active Substance: METRONIDAZOLE
     Route: 040
  5. LEVOFLOXACIN. [Suspect]
     Active Substance: LEVOFLOXACIN
     Route: 040
  6. NIMESULIDE [Suspect]
     Active Substance: NIMESULIDE
  7. MEROPENEM. [Suspect]
     Active Substance: MEROPENEM
     Route: 040
  8. CEFOPERAZONE [Suspect]
     Active Substance: CEFOPERAZONE
     Route: 040
  9. PARACETAMOL [Suspect]
     Active Substance: ACETAMINOPHEN
     Route: 040
  10. PIPERACILLIN AND TAZOBACTAM [Suspect]
     Active Substance: PIPERACILLIN SODIUM\TAZOBACTAM SODIUM
     Route: 040
  11. LACTATED RINGERS [Concomitant]
     Active Substance: CALCIUM CHLORIDE\POTASSIUM CHLORIDE\SODIUM CHLORIDE\SODIUM LACTATE
  12. ISOLYTE H IN DEXTROSE [Concomitant]
     Active Substance: DEXTROSE\MAGNESIUM CHLORIDE\POTASSIUM CHLORIDE\SODIUM ACETATE\SODIUM CHLORIDE
  13. DEXAMETHASONE. [Suspect]
     Active Substance: DEXAMETHASONE
     Route: 040
  14. AMIKACIN [Suspect]
     Active Substance: AMIKACIN
     Route: 040
  15. LOPERAMIDE HCL [Suspect]
     Active Substance: LOPERAMIDE HYDROCHLORIDE
  16. FUROSEMIDE. [Suspect]
     Active Substance: FUROSEMIDE
     Route: 040
  17. DOPAMINE [Suspect]
     Active Substance: DOPAMINE\DOPAMINE HYDROCHLORIDE
     Route: 041
  18. SODIUM CHLORIDE. [Concomitant]
     Active Substance: SODIUM CHLORIDE
  19. RANITIDINE. [Suspect]
     Active Substance: RANITIDINE
     Route: 040
  20. CIPROFLOXACIN. [Suspect]
     Active Substance: CIPROFLOXACIN
     Route: 048
  21. RANITIDINE. [Suspect]
     Active Substance: RANITIDINE
     Route: 048

REACTIONS (8)
  - Diarrhoea [Recovering/Resolving]
  - Renal failure [None]
  - Pulmonary oedema [None]
  - Multiple organ dysfunction syndrome [Recovering/Resolving]
  - Vomiting [Recovering/Resolving]
  - Pyrexia [None]
  - Hepatic function abnormal [None]
  - Shock [None]
